FAERS Safety Report 18376744 (Version 1)
Quarter: 2020Q4

REPORT INFORMATION
  Report Type: Spontaneous
  Country: IT (occurrence: IT)
  Receive Date: 20201013
  Receipt Date: 20201013
  Transmission Date: 20210114
  Serious: Yes (Hospitalization)
  Sender: FDA-Public Use
  Company Number: IT-JNJFOC-20201008245

PATIENT
  Age: 44 Year
  Sex: Male

DRUGS (1)
  1. XARELTO [Suspect]
     Active Substance: RIVAROXABAN
     Indication: ANTICOAGULANT THERAPY
     Dosage: 20 MG, QD
     Route: 048
     Dates: start: 20191127, end: 20200727

REACTIONS (5)
  - Anaemia [Recovering/Resolving]
  - Rectal haemorrhage [Recovering/Resolving]
  - Abdominal pain [Recovering/Resolving]
  - Diarrhoea [Recovering/Resolving]
  - Epistaxis [Recovering/Resolving]

NARRATIVE: CASE EVENT DATE: 20200727
